FAERS Safety Report 9217724 (Version 1)
Quarter: 2013Q2

REPORT INFORMATION
  Report Type: Report from Study
  Country: KR (occurrence: KR)
  Receive Date: 20130408
  Receipt Date: 20130408
  Transmission Date: 20140414
  Serious: Yes (Other)
  Sender: FDA-Public Use
  Company Number: KR-NAPPMUNDI-GBR-2013-0013612

PATIENT
  Sex: Female

DRUGS (5)
  1. OXYCODONE [Suspect]
     Indication: CANCER PAIN
     Dosage: UNK
     Route: 048
     Dates: start: 20110804
  2. TRAMADOL HCL [Concomitant]
     Dosage: UNK
     Dates: start: 20110527
  3. ZOLPIDEM TARTRATE [Concomitant]
     Dosage: UNK
     Dates: start: 20110601
  4. MAGNESIUM OXIDE [Concomitant]
     Dosage: UNK
     Dates: start: 20110819
  5. LACTITOL [Concomitant]
     Dosage: UNK
     Dates: start: 20110819

REACTIONS (8)
  - Delirium [Unknown]
  - Dry mouth [Unknown]
  - Hyperhidrosis [Unknown]
  - Pruritus [Unknown]
  - Urinary retention [Unknown]
  - Respiratory depression [Unknown]
  - Dizziness [Unknown]
  - Myoclonus [Unknown]
